FAERS Safety Report 4361951-X (Version None)
Quarter: 2004Q2

REPORT INFORMATION
  Report Type: 
  Country: None (occurrence: None)
  Receive Date: 20040521
  Receipt Date: 20040206
  Transmission Date: 20050107
  Serious: No
  Sender: FDA-Public Use
  Company Number: US-GLAXOSMITHKLINE-A0497075A

PATIENT
  Age: 34 Year
  Sex: Female

DRUGS (3)
  1. WELLBUTRIN XL [Suspect]
     Indication: ANXIETY
     Dosage: 150MG PER DAY
     Route: 048
     Dates: start: 20040101, end: 20040101
  2. EFFEXOR [Suspect]
     Dosage: 37.5MG PER DAY
     Dates: start: 20040101, end: 20040101
  3. VALIUM [Concomitant]

REACTIONS (10)
  - ANOREXIA [None]
  - CHEST DISCOMFORT [None]
  - FEELING JITTERY [None]
  - HEART RATE INCREASED [None]
  - NAUSEA [None]
  - PALPITATIONS [None]
  - RETCHING [None]
  - SOMNOLENCE [None]
  - TINNITUS [None]
  - TREMOR [None]
